FAERS Safety Report 7900834-2 (Version None)
Quarter: 2011Q4

REPORT INFORMATION
  Report Type: 
  Country: None (occurrence: None)
  Receive Date: 20111108
  Receipt Date: 20111108
  Transmission Date: 20120403
  Serious: Yes (Death)
  Sender: FDA-Public Use
  Company Number: None

PATIENT
  Sex: Female
  Weight: 120.65 kg

DRUGS (12)
  1. DOCUSATE SODIUM [Concomitant]
     Route: 048
  2. HYDROCODONE-ACETAMINOPHEN 5 MG-325 MG [Concomitant]
     Route: 048
  3. APREPITANT [Concomitant]
  4. CARVEDILOL [Concomitant]
     Route: 048
  5. LORAZEPAM [Concomitant]
     Route: 048
  6. CEFEPIME [Concomitant]
     Route: 042
  7. ZOFRAN [Concomitant]
     Route: 048
  8. IOPAMIDOL [Suspect]
     Dosage: 125 ML
     Route: 040
     Dates: start: 20111003, end: 20111003
  9. ACETAMINOPHEN ORAL -TYLENOL [Concomitant]
     Route: 048
  10. PAROXETINE HCL [Concomitant]
  11. COMPAZINE [Concomitant]
     Route: 048
  12. EMLA CREAM -LIDOCAINE2.5%, PRILOCAINE 2.5% [Concomitant]
     Route: 061

REACTIONS (8)
  - INCONTINENCE [None]
  - URTICARIA [None]
  - FEELING HOT [None]
  - ANXIETY [None]
  - DYSPNOEA [None]
  - CHOKING [None]
  - CHOKING SENSATION [None]
  - RESPIRATORY ARREST [None]
